FAERS Safety Report 6399955-8 (Version None)
Quarter: 2009Q4

REPORT INFORMATION
  Report Type: 
  Country: None (occurrence: None)
  Receive Date: 20091008
  Receipt Date: 20091008
  Transmission Date: 20100525
  Serious: Yes (Hospitalization)
  Sender: FDA-Public Use
  Company Number: None

PATIENT
  Sex: Female

DRUGS (1)
  1. CEFDINIR [Suspect]
     Dosage: 300MG BID PO
     Route: 048
     Dates: start: 20081101, end: 20081111

REACTIONS (1)
  - DIARRHOEA [None]
